FAERS Safety Report 9239315 (Version 1)
Quarter: 2013Q2

REPORT INFORMATION
  Report Type: Spontaneous
  Country: FR (occurrence: FR)
  Receive Date: 20130418
  Receipt Date: 20130418
  Transmission Date: 20140414
  Serious: Yes (Hospitalization, Other)
  Sender: FDA-Public Use
  Company Number: FR-UCBSA-083059

PATIENT
  Age: 24 Year
  Sex: Female

DRUGS (5)
  1. KEPPRA [Suspect]
     Indication: EPILEPSY
     Dosage: DOSE WAS PROGRESSIVELY DECREASED
     Route: 048
     Dates: start: 20090128, end: 201210
  2. GARDENAL [Concomitant]
     Dosage: AS LONG TERM TREATMENT
     Route: 048
  3. ATHYMIL [Concomitant]
     Dosage: AS LONG TERM TREATMENT
     Route: 048
  4. DEPAKINE [Concomitant]
     Dosage: AS LONG TERM TREATMENT
     Route: 048
  5. INOVELON [Concomitant]
     Route: 048
     Dates: start: 201210

REACTIONS (2)
  - Decreased appetite [Recovered/Resolved]
  - Weight decreased [Recovered/Resolved]
